FAERS Safety Report 11690648 (Version 1)
Quarter: 2015Q4

REPORT INFORMATION
  Report Type: Spontaneous
  Country: CA (occurrence: CA)
  Receive Date: 20151102
  Receipt Date: 20151102
  Transmission Date: 20160304
  Serious: Yes (Hospitalization, Other)
  Sender: FDA-Public Use
  Company Number: CA-TEVA-605131USA

PATIENT
  Age: 24 Year
  Sex: Female

DRUGS (7)
  1. CLONAZEPAM. [Concomitant]
     Active Substance: CLONAZEPAM
     Dosage: UP TO 10MG DAILY
     Route: 065
  2. OLANZAPINE. [Concomitant]
     Active Substance: OLANZAPINE
     Dosage: 10MG DAILY
     Route: 065
  3. BUPROPION. [Suspect]
     Active Substance: BUPROPION
     Indication: SUBSTANCE USE
     Dosage: 7 INJECTIONS AT RATE OF 300MG/H (TOTAL 2100MG)
     Route: 042
  4. DULOXETINE. [Concomitant]
     Active Substance: DULOXETINE
     Dosage: 900MG DAILY
     Route: 065
  5. CLONAZEPAM. [Concomitant]
     Active Substance: CLONAZEPAM
     Dosage: 1MG 3 TIMES DAILY
     Route: 065
  6. CYMBALTA [Concomitant]
     Active Substance: DULOXETINE HYDROCHLORIDE
     Dosage: 90MG DAILY
     Route: 065
  7. BUPROPION. [Suspect]
     Active Substance: BUPROPION
     Indication: SUBSTANCE USE
     Route: 042

REACTIONS (3)
  - Cellulitis [Recovering/Resolving]
  - Necrosis [Recovering/Resolving]
  - Arterial occlusive disease [Recovering/Resolving]
